FAERS Safety Report 7626822 (Version 2)
Quarter: 2017Q4

REPORT INFORMATION
  Report Type: Report from Study
  Country: US (occurrence: US)
  Receive Date: 20101013
  Receipt Date: 20171218
  Transmission Date: 20180321
  Serious: Yes (Death, Hospitalization)
  Sender: FDA-Public Use
  Company Number: PHHO2009US13636

PATIENT
  Age: 53 Year
  Sex: Male
  Weight: 86.1 kg

DRUGS (6)
  1. GLEEVEC [Suspect]
     Active Substance: IMATINIB MESYLATE
     Indication: ACUTE MYELOID LEUKAEMIA
     Dosage: 800MG DAILY
     Route: 048
     Dates: start: 20090826
  2. CLADRIBINE. [Suspect]
     Active Substance: CLADRIBINE
     Route: 065
  3. METHOTREXATE. [Concomitant]
     Active Substance: METHOTREXATE
  4. VITAMIN K [Concomitant]
     Active Substance: PHYTONADIONE
  5. ARA-C [Suspect]
     Active Substance: CYTARABINE
     Route: 065
  6. G-CSF [Concomitant]
     Active Substance: GRANULOCYTE COLONY-STIMULATING FACTOR NOS

REACTIONS (18)
  - Cardiac failure [Fatal]
  - Iron overload [Fatal]
  - Confusional state [Fatal]
  - Hypoalbuminaemia [Fatal]
  - Troponin increased [Fatal]
  - Blood count abnormal [Fatal]
  - Ischaemia [Fatal]
  - Multiple organ dysfunction syndrome [Fatal]
  - Jaundice [Fatal]
  - Shock [Fatal]
  - Hepatic failure [Fatal]
  - Transaminases increased [Fatal]
  - Blood bilirubin increased [Fatal]
  - Hepatic enzyme increased [Fatal]
  - Blood creatinine increased [Fatal]
  - Acute kidney injury [Fatal]
  - Respiratory failure [Fatal]
  - Vomiting [Fatal]

NARRATIVE: CASE EVENT DATE: 20091024
